FAERS Safety Report 6473654-6 (Version None)
Quarter: 2009Q4

REPORT INFORMATION
  Report Type: 
  Country: None (occurrence: None)
  Receive Date: 20091204
  Receipt Date: 20091201
  Transmission Date: 20100525
  Serious: Yes (Death, Hospitalization, Other)
  Sender: FDA-Public Use
  Company Number: PR-BAYER-200936731NA

PATIENT
  Age: 85 Year
  Sex: Female

DRUGS (2)
  1. AVELOX [Suspect]
     Indication: PNEUMONIA
     Route: 042
     Dates: start: 20091007, end: 20091009
  2. AVELOX [Suspect]
     Dosage: TOTAL DAILY DOSE: 400 MG  UNIT DOSE: 400 MG
     Route: 048
     Dates: start: 20091010, end: 20091012

REACTIONS (5)
  - CLOSTRIDIUM TEST POSITIVE [None]
  - COLECTOMY [None]
  - DIARRHOEA [None]
  - RENAL FAILURE CHRONIC [None]
  - SEPSIS [None]
